FAERS Safety Report 16810996 (Version 5)
Quarter: 2020Q4

REPORT INFORMATION
  Report Type: Spontaneous
  Country: DE (occurrence: DE)
  Receive Date: 20190916
  Receipt Date: 20201109
  Transmission Date: 20210113
  Serious: Yes (Other)
  Sender: FDA-Public Use
  Company Number: DE-MYLANLABS-2019M1086146

PATIENT
  Age: 79 Year
  Sex: Male

DRUGS (13)
  1. RAMIPRIL. [Suspect]
     Active Substance: RAMIPRIL
     Indication: HYPERTENSION
     Dosage: UNK UNK, UNK
     Route: 048
  2. NOVAMINSULFON [Concomitant]
     Active Substance: METAMIZOLE
     Dosage: UNK
  3. ASPIRIN. [Concomitant]
     Active Substance: ASPIRIN
     Indication: PRODUCT USED FOR UNKNOWN INDICATION
     Dosage: UNK
  4. FENTANYL. [Suspect]
     Active Substance: FENTANYL
     Indication: KNEE OPERATION
     Dosage: 100 UG, UNK
     Route: 062
     Dates: start: 2009
  5. TAMSULOSIN [Suspect]
     Active Substance: TAMSULOSIN
     Indication: BENIGN PROSTATIC HYPERPLASIA
     Dosage: UNK
     Route: 048
  6. NITRAZEPAM [Suspect]
     Active Substance: NITRAZEPAM
     Dosage: 5 DF, UNK
  7. NOVAMINSULFON [Concomitant]
     Active Substance: METAMIZOLE
     Indication: PRODUCT USED FOR UNKNOWN INDICATION
     Dosage: UNK
     Route: 048
  8. NITRAZEPAM [Suspect]
     Active Substance: NITRAZEPAM
     Indication: INSOMNIA
     Dosage: 0.5 DF, UNK
     Route: 048
  9. NITRAZEPAM [Suspect]
     Active Substance: NITRAZEPAM
     Dosage: 0.5 DF, UNK
     Route: 048
  10. MAGNESIUM [Concomitant]
     Active Substance: MAGNESIUM
     Indication: PRODUCT USED FOR UNKNOWN INDICATION
     Dosage: UNK
  11. SEEBRI [Concomitant]
     Active Substance: GLYCOPYRROLATE
     Indication: PRODUCT USED FOR UNKNOWN INDICATION
     Dosage: UNK
  12. NITRAZEPAM [Suspect]
     Active Substance: NITRAZEPAM
     Dosage: 5 DF, UNK
     Route: 048
  13. OMEPRAZOLE. [Concomitant]
     Active Substance: OMEPRAZOLE
     Indication: PRODUCT USED FOR UNKNOWN INDICATION
     Dosage: UNK

REACTIONS (6)
  - Memory impairment [Unknown]
  - Drug abuse [Unknown]
  - Dyspnoea [Unknown]
  - Fatigue [Unknown]
  - Feeling cold [Unknown]
  - Drug dependence [Unknown]
